FAERS Safety Report 25522764 (Version 1)
Quarter: 2025Q3

REPORT INFORMATION
  Report Type: Spontaneous
  Country: TZ (occurrence: TZ)
  Receive Date: 20250707
  Receipt Date: 20250707
  Transmission Date: 20251021
  Serious: Yes (Death, Life-Threatening, Hospitalization, Other)
  Sender: EPIC PHARM
  Company Number: TZ-EPICPHARMA-TZ-2025EPCLIT00787

PATIENT
  Age: 37 Year
  Sex: Female

DRUGS (3)
  1. TRANEXAMIC ACID [Suspect]
     Active Substance: TRANEXAMIC ACID
     Indication: Product used for unknown indication
     Route: 037
  2. POVIDONE-IODINE [Concomitant]
     Active Substance: POVIDONE-IODINE
     Indication: Product used for unknown indication
     Route: 065
  3. ALCOHOL [Concomitant]
     Active Substance: ALCOHOL
     Indication: Product used for unknown indication
     Route: 065

REACTIONS (14)
  - Cardiac arrest [Fatal]
  - Acute kidney injury [Fatal]
  - Generalised tonic-clonic seizure [Not Recovered/Not Resolved]
  - Tachycardia [Unknown]
  - Hypertension [Unknown]
  - Muscle discomfort [Unknown]
  - Chest discomfort [Unknown]
  - Pruritus [Unknown]
  - Back pain [Unknown]
  - Agitation [Unknown]
  - Mental status changes [Unknown]
  - Maternal exposure during delivery [Unknown]
  - Accidental exposure to product [Unknown]
  - Incorrect route of product administration [Unknown]
